FAERS Safety Report 9535916 (Version 1)
Quarter: 2013Q2

REPORT INFORMATION
  Report Type: Spontaneous
  Country: US (occurrence: None)
  Receive Date: 20130507
  Receipt Date: 20130507
  Transmission Date: 20140414
  Serious: Yes (Other)
  Sender: FDA-Public Use
  Company Number: PHEH2013US002167

PATIENT
  Sex: Male

DRUGS (1)
  1. AFINITOR [Suspect]
     Indication: MALIGNANT NEOPLASM OF ISLETS OF LANGERHANS
     Route: 048
     Dates: start: 20120817

REACTIONS (1)
  - Herpes zoster [None]
